FAERS Safety Report 8230578-1 (Version None)
Quarter: 2012Q1

REPORT INFORMATION
  Report Type: 
  Country: None (occurrence: None)
  Receive Date: 20120323
  Receipt Date: 20120315
  Transmission Date: 20120608
  Serious: Yes (Other)
  Sender: FDA-Public Use
  Company Number: US-JNJFOC-20111104017

PATIENT
  Sex: Female

DRUGS (8)
  1. HYDROCODONE BITARTRATE [Suspect]
     Indication: MIGRAINE
     Route: 065
  2. CLINDAMYCIN [Concomitant]
     Indication: INFECTION
     Route: 065
  3. TOPAMAX [Suspect]
     Indication: MIGRAINE
     Route: 048
     Dates: start: 20080617, end: 20080717
  4. TOPAMAX [Suspect]
     Route: 048
     Dates: start: 20070401, end: 20080101
  5. TYLENOL W/ CODEINE [Suspect]
     Indication: MIGRAINE
     Route: 048
  6. VITAMIN AND MINERAL PRENATAL SUPPLEMENT W/ FOLIC ACID CAP [Concomitant]
  7. ZANTAC [Suspect]
     Indication: PRODUCT USED FOR UNKNOWN INDICATION
     Route: 065
  8. ALDOMET [Concomitant]
     Indication: HYPERTENSION
     Route: 065

REACTIONS (4)
  - DEPRESSION [None]
  - STRESS [None]
  - MATERNAL EXPOSURE DURING PREGNANCY [None]
  - FOETAL HYPOKINESIA [None]
